FAERS Safety Report 19468741 (Version 4)
Quarter: 2022Q2

REPORT INFORMATION
  Report Type: Spontaneous
  Country: US (occurrence: US)
  Receive Date: 20210628
  Receipt Date: 20220517
  Transmission Date: 20220721
  Serious: No
  Sender: FDA-Public Use
  Company Number: US-PFIZER INC-2021465798

PATIENT
  Age: 67 Year
  Sex: Female
  Weight: 94.35 kg

DRUGS (1)
  1. XELJANZ XR [Suspect]
     Active Substance: TOFACITINIB CITRATE
     Indication: Rheumatoid arthritis
     Dosage: 11 MG, 1X/DAY (11MG TABLET, BY MOUTH, ONCE DAILY)
     Route: 048

REACTIONS (3)
  - Arthritis [Unknown]
  - Dysgraphia [Unknown]
  - Gait disturbance [Unknown]
